FAERS Safety Report 8174146-9 (Version None)
Quarter: 2012Q1

REPORT INFORMATION
  Report Type: 
  Country: None (occurrence: None)
  Receive Date: 20120229
  Receipt Date: 20120217
  Transmission Date: 20120608
  Serious: Yes (Hospitalization)
  Sender: FDA-Public Use
  Company Number: JP-UCBSA-050502

PATIENT
  Age: 28 Year
  Sex: Male
  Weight: 101.1 kg

DRUGS (8)
  1. KEPPRA [Suspect]
     Route: 048
     Dates: start: 20110623, end: 20110710
  2. KEPPRA [Suspect]
     Dosage: 500 MG + 1000 MG
     Route: 048
     Dates: start: 20110217, end: 20110622
  3. KEPPRA [Suspect]
     Route: 048
     Dates: start: 20101104, end: 20110216
  4. KEPPRA [Suspect]
     Indication: EPILEPSY
     Dosage: DAILY DOSE: 1250 MG/DAY
     Route: 048
     Dates: start: 20110911, end: 20110916
  5. KEPPRA [Suspect]
     Dosage: DAILY DOSE: 1000 MG
     Route: 048
     Dates: start: 20110902, end: 20110910
  6. KEPPRA [Suspect]
     Dosage: DAILY DOSE: 1500 MG
     Route: 048
     Dates: start: 20110808, end: 20110901
  7. KEPPRA [Suspect]
     Route: 048
     Dates: start: 20110726, end: 20110807
  8. KEPPRA [Suspect]
     Route: 048
     Dates: start: 20110711, end: 20110725

REACTIONS (2)
  - COGNITIVE DISORDER [None]
  - CONVULSION [None]
